FAERS Safety Report 9400277 (Version 1)
Quarter: 2013Q3

REPORT INFORMATION
  Report Type: Report from Study
  Country: CA (occurrence: CA)
  Receive Date: 20130715
  Receipt Date: 20130715
  Transmission Date: 20140515
  Serious: Yes (Other)
  Sender: FDA-Public Use
  Company Number: CA-JNJFOC-20130706904

PATIENT
  Age: 52 Year
  Sex: Male

DRUGS (1)
  1. STELARA [Suspect]
     Indication: PSORIASIS
     Route: 058
     Dates: start: 20121213

REACTIONS (2)
  - Cellulitis [Unknown]
  - Psoriasis [Unknown]
